FAERS Safety Report 8415597-4 (Version None)
Quarter: 2012Q2

REPORT INFORMATION
  Report Type: 
  Country: None (occurrence: None)
  Receive Date: 20120606
  Receipt Date: 20120526
  Transmission Date: 20120825
  Serious: Yes (Other)
  Sender: FDA-Public Use
  Company Number: IN-BRISTOL-MYERS SQUIBB COMPANY-16634941

PATIENT
  Age: 60 Year
  Sex: Female

DRUGS (2)
  1. METFORMIN HCL [Suspect]
     Indication: DIABETES MELLITUS
     Dosage: 500MG XR,AFTER BREAKFAST
  2. ONGLYZA [Suspect]
     Indication: DIABETES MELLITUS
     Dosage: AFTER BREAKFAST
     Dates: start: 20120101

REACTIONS (3)
  - SWELLING [None]
  - PRURITUS GENERALISED [None]
  - GENERALISED ERYTHEMA [None]
